FAERS Safety Report 4363625-8 (Version None)
Quarter: 2004Q2

REPORT INFORMATION
  Report Type: 
  Country: None (occurrence: None)
  Receive Date: 20040524
  Receipt Date: 20040524
  Transmission Date: 20050107
  Serious: Yes (Other)
  Sender: FDA-Public Use
  Company Number: None

PATIENT
  Age: 42 Year
  Sex: Female
  Weight: 87 kg

DRUGS (2)
  1. BECLOMETHASONE DIPROPIONATE [Suspect]
     Indication: HYPERSENSITIVITY
     Dosage: 1 SPRAY 2X DAILY NASAL
     Route: 045
     Dates: start: 20030102, end: 20040503
  2. WARFARIN SODIUM [Concomitant]

REACTIONS (2)
  - DEEP VEIN THROMBOSIS [None]
  - EPISTAXIS [None]
